FAERS Safety Report 24353320 (Version 1)
Quarter: 2024Q3

REPORT INFORMATION
  Report Type: Spontaneous
  Country: CN (occurrence: CN)
  Receive Date: 20240923
  Receipt Date: 20240923
  Transmission Date: 20241016
  Serious: No
  Sender: ROCHE
  Company Number: CN-ROCHE-3452359

PATIENT
  Age: 61 Year
  Sex: Female
  Weight: 56.0 kg

DRUGS (1)
  1. HERCEPTIN [Suspect]
     Active Substance: TRASTUZUMAB
     Indication: Breast cancer
     Route: 041
     Dates: start: 20231029

REACTIONS (3)
  - Arthralgia [Unknown]
  - Myalgia [Unknown]
  - Asthenia [Unknown]

NARRATIVE: CASE EVENT DATE: 20231030
